FAERS Safety Report 6739336-8 (Version None)
Quarter: 2010Q2

REPORT INFORMATION
  Report Type: 
  Country: None (occurrence: None)
  Receive Date: 20100521
  Receipt Date: 20100507
  Transmission Date: 20101027
  Serious: Yes (Other)
  Sender: FDA-Public Use
  Company Number: 586578

PATIENT
  Age: 44 Year
  Sex: Female

DRUGS (19)
  1. FENTANYL CITRATE [Suspect]
     Indication: ANAESTHESIA PROCEDURE
     Dosage: 100 ?G MICROGRAM(S), INTRAVENOUS; 250 ?G MICROGRAM(S), INTRAVENOUS
     Route: 042
  2. FENTANYL CITRATE [Suspect]
     Indication: INDUCTION OF ANAESTHESIA
     Dosage: 100 ?G MICROGRAM(S), INTRAVENOUS; 250 ?G MICROGRAM(S), INTRAVENOUS
     Route: 042
  3. ONDANSETRON [Suspect]
     Indication: PROPHYLAXIS OF NAUSEA AND VOMITING
     Dosage: 4 MG MILLIGRAM(S), INTRAVENOUS
     Route: 042
  4. DULOXETINE HYDROCHLORIDE [Suspect]
     Indication: DEPRESSION
  5. (LITHIUM) [Suspect]
     Indication: DEPRESSION
  6. QUETIAPINE [Suspect]
     Indication: DEPRESSION
  7. CLONAZEPAM [Concomitant]
  8. LAMOTRIGINE [Concomitant]
  9. TOPIRAMATE [Concomitant]
  10. MIDAZOLAM HCL [Concomitant]
  11. PROPOFOL [Concomitant]
  12. ROCURONIUM BROMIDE [Concomitant]
  13. DESFLURANE [Concomitant]
  14. HYDROMORPHONE HYDROCHLORIDE [Concomitant]
  15. LACTATED RINGER'S [Concomitant]
  16. HEXTEND 6% HETASTRCH IN LACTATED ELEC INJ (HETASTARCH) [Concomitant]
  17. (NEOSTIGMINE) [Concomitant]
  18. (GLYCOPYRROLATE /00196202/) [Concomitant]
  19. ACETAMINOPHEN AND HYDROCODONE BITARTRATE [Concomitant]

REACTIONS (3)
  - DRUG INTERACTION [None]
  - HAEMORRHAGE [None]
  - SEROTONIN SYNDROME [None]
